FAERS Safety Report 5520638-8 (Version None)
Quarter: 2007Q4

REPORT INFORMATION
  Report Type: 
  Country: None (occurrence: None)
  Receive Date: 20071119
  Receipt Date: 20071112
  Transmission Date: 20080405
  Serious: Yes (Death, Other)
  Sender: FDA-Public Use
  Company Number: IN-BRISTOL-MYERS SQUIBB COMPANY-13979331

PATIENT
  Age: 4 Year
  Sex: Female

DRUGS (7)
  1. METHOTREXATE [Suspect]
     Indication: ACUTE LYMPHOCYTIC LEUKAEMIA
     Route: 037
  2. VINCRISTINE SULFATE [Suspect]
  3. PREDNISOLONE [Suspect]
  4. ASPARAGINASE [Suspect]
  5. DAUNORUBICIN HCL [Suspect]
  6. RADIOTHERAPY [Suspect]
     Indication: ACUTE LYMPHOCYTIC LEUKAEMIA
  7. TEMOZOLOMIDE [Suspect]

REACTIONS (2)
  - GLIOBLASTOMA [None]
  - MALIGNANT NEOPLASM PROGRESSION [None]
